FAERS Safety Report 8574353-7 (Version None)
Quarter: 2012Q3

REPORT INFORMATION
  Report Type: 
  Country: None (occurrence: None)
  Receive Date: 20120806
  Receipt Date: 20120207
  Transmission Date: 20120928
  Serious: Yes (Other)
  Sender: FDA-Public Use
  Company Number: CHPA2012US013288

PATIENT
  Sex: Female

DRUGS (1)
  1. EXCEDRIN (MIGRAINE) [Suspect]
     Indication: MIGRAINE
     Dosage: 2 PILLS EACH DOSE

REACTIONS (13)
  - HYPERHIDROSIS [None]
  - APHONIA [None]
  - EYE SWELLING [None]
  - DYSPHAGIA [None]
  - COUGH [None]
  - DISEASE RECURRENCE [None]
  - DYSPNOEA [None]
  - URTICARIA [None]
  - MALAISE [None]
  - HYPERSENSITIVITY [None]
  - PHARYNGEAL OEDEMA [None]
  - PRURITUS GENERALISED [None]
  - EXPOSURE DURING BREAST FEEDING [None]
